FAERS Safety Report 24572302 (Version 1)
Quarter: 2024Q4

REPORT INFORMATION
  Report Type: Spontaneous
  Country: AU (occurrence: AU)
  Receive Date: 20241101
  Receipt Date: 20241101
  Transmission Date: 20250115
  Serious: Yes (Hospitalization)
  Sender: CSL BEHRING
  Company Number: AU-BEH-2024182730

PATIENT
  Age: 70 Year
  Sex: Female

DRUGS (2)
  1. PRIVIGEN [Suspect]
     Active Substance: HUMAN IMMUNOGLOBULIN G
     Indication: Product used for unknown indication
     Dosage: 1/4
     Route: 042
     Dates: start: 20240923, end: 20240923
  2. PRIVIGEN [Suspect]
     Active Substance: HUMAN IMMUNOGLOBULIN G
     Dosage: 2/3
     Route: 042

REACTIONS (14)
  - Back pain [Unknown]
  - Pain in extremity [Unknown]
  - Chills [Unknown]
  - Vomiting [Unknown]
  - Hypoxia [Unknown]
  - Pain [Unknown]
  - Myasthenia gravis [Unknown]
  - Tachycardia [Unknown]
  - Respiratory failure [Unknown]
  - Chills [Unknown]
  - Vomiting [Unknown]
  - Dyspnoea [Unknown]
  - Somnolence [Unknown]
  - Hyperkalaemia [Unknown]

NARRATIVE: CASE EVENT DATE: 20240923
